FAERS Safety Report 20438800 (Version 1)
Quarter: 2022Q1

REPORT INFORMATION
  Report Type: Spontaneous
  Country: US (occurrence: US)
  Receive Date: 20220207
  Receipt Date: 20220207
  Transmission Date: 20220423
  Serious: No
  Sender: FDA-Public Use
  Company Number: US-GW PHARMA-202201USGW00485

PATIENT
  Age: 19 Year
  Sex: Male

DRUGS (1)
  1. EPIDIOLEX [Suspect]
     Active Substance: CANNABIDIOL
     Indication: Seizure
     Dosage: 250 MILLIGRAM, TID (FIRST SHIPPED ON 06 MAR 2019)
     Route: 048
     Dates: start: 201903

REACTIONS (4)
  - Seizure [Unknown]
  - Product supply issue [Unknown]
  - Product dose omission issue [Unknown]
  - Off label use [Unknown]

NARRATIVE: CASE EVENT DATE: 20220131
